FAERS Safety Report 4607860-X (Version None)
Quarter: 2005Q1

REPORT INFORMATION
  Report Type: 
  Country: None (occurrence: None)
  Receive Date: 20050310
  Receipt Date: 20050303
  Transmission Date: 20050727
  Serious: Yes (Life-Threatening, Hospitalization)
  Sender: FDA-Public Use
  Company Number: 2005019189

PATIENT
  Age: 18 Year
  Sex: Female

DRUGS (2)
  1. NEURONTIN [Suspect]
     Indication: DIABETIC NEUROPATHY
     Dosage: 3600 MG (1200 MG, 3 IN 1 D), ORAL
     Route: 048
     Dates: start: 20030820, end: 20030907
  2. CARBAMAZEPINE [Suspect]
     Indication: PAIN
     Dosage: 1200 MG (400 MG, 3 IN 1 D), ORAL
     Route: 048
     Dates: start: 20030813, end: 20030907

REACTIONS (4)
  - DRUG RASH WITH EOSINOPHILIA AND SYSTEMIC SYMPTOMS [None]
  - LYMPHOCYTE MORPHOLOGY ABNORMAL [None]
  - LYMPHOCYTE TRANSFORMATION TEST POSITIVE [None]
  - SKIN TEST POSITIVE [None]
